FAERS Safety Report 8011753-8 (Version None)
Quarter: 2011Q4

REPORT INFORMATION
  Report Type: 
  Country: None (occurrence: None)
  Receive Date: 20111228
  Receipt Date: 20111222
  Transmission Date: 20120403
  Serious: Yes (Other)
  Sender: FDA-Public Use
  Company Number: US-ALEXION PHARMACEUTICALS INC.-A201100475

PATIENT
  Sex: Female

DRUGS (3)
  1. COUMADIN [Concomitant]
     Indication: THROMBOSIS PROPHYLAXIS
     Dosage: 7.5 MG, QD
     Dates: end: 20111215
  2. SOLIRIS [Suspect]
     Indication: PAROXYSMAL NOCTURNAL HAEMOGLOBINURIA
     Dosage: 900 MG Q2W
     Route: 042
     Dates: start: 20070706
  3. FLONASE [Concomitant]
     Dosage: UNK, 50 MCG

REACTIONS (4)
  - BREAST CANCER IN SITU [None]
  - PROCEDURAL COMPLICATION [None]
  - POST PROCEDURAL DRAINAGE [None]
  - BREAST HYPERPLASIA [None]
